FAERS Safety Report 13277341 (Version 2)
Quarter: 2017Q2

REPORT INFORMATION
  Report Type: Spontaneous
  Country: CA (occurrence: CA)
  Receive Date: 20170228
  Receipt Date: 20170404
  Transmission Date: 20170830
  Serious: Yes (Life-Threatening, Other)
  Sender: FDA-Public Use
  Company Number: CA-PFIZER INC-2017011182

PATIENT
  Age: 38 Year
  Sex: Female
  Weight: 82 kg

DRUGS (3)
  1. PRISTIQ EXTENDED-RELEASE [Suspect]
     Active Substance: DESVENLAFAXINE SUCCINATE
     Indication: MAJOR DEPRESSION
     Dosage: 100 MG (2X50 MG), DAILY AT NIGHT
     Route: 048
     Dates: start: 201002
  2. PRISTIQ EXTENDED-RELEASE [Suspect]
     Active Substance: DESVENLAFAXINE SUCCINATE
     Indication: BIPOLAR DISORDER
  3. ABILIFY [Concomitant]
     Active Substance: ARIPIPRAZOLE
     Indication: BIPOLAR DISORDER
     Dosage: 10 MG, 1X/DAY AT NIGHT
     Route: 048
     Dates: start: 201002

REACTIONS (1)
  - Endometrial cancer stage IV [Unknown]

NARRATIVE: CASE EVENT DATE: 20160327
